FAERS Safety Report 10501035 (Version 1)
Quarter: 2014Q4

REPORT INFORMATION
  Report Type: Spontaneous
  Country: US (occurrence: None)
  Receive Date: 20141003
  Receipt Date: 20141003
  Transmission Date: 20150528
  Serious: Yes (Other)
  Sender: FDA-Public Use
  Company Number: None

PATIENT
  Age: 80 Year
  Sex: Female
  Weight: 52.16 kg

DRUGS (1)
  1. RISEDRONATE [Suspect]
     Active Substance: RISEDRONATE SODIUM
     Indication: OSTEOPOROSIS
     Dosage: 1 PILL ONCE A MONTH TAKEN BY MOUTH
     Route: 048
     Dates: start: 20141001

REACTIONS (7)
  - Pain in extremity [None]
  - Chills [None]
  - Pyrexia [None]
  - Asthenia [None]
  - Diarrhoea [None]
  - Gastroenteritis viral [None]
  - Vomiting [None]

NARRATIVE: CASE EVENT DATE: 20140701
